FAERS Safety Report 7610433-8 (Version None)
Quarter: 2011Q3

REPORT INFORMATION
  Report Type: 
  Country: None (occurrence: None)
  Receive Date: 20110715
  Receipt Date: 20110713
  Transmission Date: 20111222
  Serious: No
  Sender: FDA-Public Use
  Company Number: US-PFIZER INC-2011159552

PATIENT
  Sex: Female
  Weight: 49.887 kg

DRUGS (2)
  1. CELEBREX [Suspect]
     Indication: PAIN IN EXTREMITY
     Dosage: 200 MG, DAILY
     Route: 048
     Dates: start: 20090101, end: 20110710
  2. PREDNISONE [Suspect]
     Indication: PAIN IN EXTREMITY
     Dosage: 10 MG, DAILY
     Route: 048
     Dates: start: 20110710

REACTIONS (2)
  - DRUG INEFFECTIVE [None]
  - PAIN [None]
